FAERS Safety Report 19022510 (Version 1)
Quarter: 2021Q1

REPORT INFORMATION
  Report Type: Spontaneous
  Country: FR (occurrence: FR)
  Receive Date: 20210317
  Receipt Date: 20210317
  Transmission Date: 20210420
  Serious: Yes (Other)
  Sender: FDA-Public Use
  Company Number: FR-PFIZER INC-2021249313

PATIENT
  Age: 62 Year
  Sex: Female

DRUGS (1)
  1. PACLITAXEL. [Suspect]
     Active Substance: PACLITAXEL
     Indication: BREAST CANCER
     Dosage: 80 MG/M2, CYCLIC (FREQ:3 (CYCLICAL);134 MG PER WEEK)
     Route: 065

REACTIONS (4)
  - Rash maculo-papular [Unknown]
  - Nail discolouration [Unknown]
  - Pruritus [Unknown]
  - Paronychia [Unknown]

NARRATIVE: CASE EVENT DATE: 20210115
